FAERS Safety Report 10957734 (Version 2)
Quarter: 2015Q2

REPORT INFORMATION
  Report Type: Spontaneous
  Country: US (occurrence: US)
  Receive Date: 20150326
  Receipt Date: 20150622
  Transmission Date: 20150821
  Serious: Yes (Hospitalization, Other)
  Sender: FDA-Public Use
  Company Number: US-PFIZER INC-2015104064

PATIENT
  Age: 64 Year
  Sex: Male
  Weight: 113 kg

DRUGS (10)
  1. ALLOPURINOL. [Concomitant]
     Active Substance: ALLOPURINOL
     Indication: GOUT
     Dosage: 300 MG, 1X/DAY
     Dates: start: 1990
  2. FISH OIL [Concomitant]
     Active Substance: FISH OIL
     Indication: EYE DISORDER
     Dosage: 500 MG, 2X/DAY
     Dates: start: 201201
  3. LEVOTHYROXINE [Concomitant]
     Active Substance: LEVOTHYROXINE
     Dosage: UNK
     Dates: start: 2007
  4. BABY ASPIRIN [Concomitant]
     Active Substance: ASPIRIN
     Dosage: UNK
     Dates: start: 201404
  5. WARFARIN [Concomitant]
     Active Substance: WARFARIN
     Dosage: UNK
     Dates: start: 2010
  6. ATORVASTATIN [Concomitant]
     Active Substance: ATORVASTATIN
     Indication: CARDIAC DISORDER
     Dosage: 80 MG, 1X/DAY
     Dates: start: 201404
  7. METOPROLOL [Concomitant]
     Active Substance: METOPROLOL
     Indication: CARDIAC DISORDER
     Dosage: 12.5 MG, 2X/DAY
     Dates: start: 201404
  8. VIAGRA [Suspect]
     Active Substance: SILDENAFIL CITRATE
     Dosage: 50 MG, 2X/WEEK ^HALF OF A 100MG TABLET MAYBE TWICE A WEEK^
     Route: 048
     Dates: start: 2005, end: 201406
  9. TERAZOSIN [Concomitant]
     Active Substance: TERAZOSIN\TERAZOSIN HYDROCHLORIDE
     Dosage: UNK
     Dates: start: 2010
  10. VIAGRA [Suspect]
     Active Substance: SILDENAFIL CITRATE
     Dosage: 50 MG, UNK (1 OR 2 TIMES A WEEK)
     Dates: start: 2005, end: 201407

REACTIONS (5)
  - Deafness unilateral [Not Recovered/Not Resolved]
  - Prostatomegaly [Not Recovered/Not Resolved]
  - Dyspnoea exertional [Recovered/Resolved]
  - Arterial occlusive disease [Recovered/Resolved]
  - Vertigo [Not Recovered/Not Resolved]

NARRATIVE: CASE EVENT DATE: 2014
